FAERS Safety Report 9148476 (Version 1)
Quarter: 2013Q1

REPORT INFORMATION
  Report Type: Report from Study
  Country: CA (occurrence: CA)
  Receive Date: 20130308
  Receipt Date: 20130308
  Transmission Date: 20140127
  Serious: Yes (Hospitalization)
  Sender: FDA-Public Use
  Company Number: CA-JNJFOC-20130216507

PATIENT
  Age: 43 Year
  Sex: Female
  Weight: 80 kg

DRUGS (15)
  1. REMICADE [Suspect]
     Indication: CROHN^S DISEASE
     Route: 042
     Dates: start: 20021016
  2. REMICADE [Suspect]
     Indication: CROHN^S DISEASE
     Route: 042
     Dates: start: 2001
  3. CALCIUM AND VITAMIN D [Concomitant]
     Route: 065
  4. SALMON OIL [Concomitant]
     Route: 065
  5. FOLIC ACID [Concomitant]
     Route: 065
  6. LEVOTHYROXINE [Concomitant]
     Route: 065
  7. PROZAC [Concomitant]
     Route: 065
  8. VITAMIN C [Concomitant]
     Route: 065
  9. MULTIVITAMINS [Concomitant]
     Route: 065
  10. IMURAN [Concomitant]
     Route: 065
  11. OXYCOCET [Concomitant]
     Dosage: DAILY
     Route: 065
  12. VITAMIN B12 [Concomitant]
     Route: 065
  13. BENADRYL [Concomitant]
     Indication: PREMEDICATION
     Route: 048
  14. TYLENOL [Concomitant]
     Indication: PREMEDICATION
     Route: 048
  15. FUROSEMIDE [Concomitant]
     Route: 048

REACTIONS (1)
  - Hysterectomy [Recovered/Resolved]
